FAERS Safety Report 10009321 (Version 1)
Quarter: 2014Q1

REPORT INFORMATION
  Report Type: Spontaneous
  Country: IT (occurrence: IT)
  Receive Date: 20140313
  Receipt Date: 20140313
  Transmission Date: 20141002
  Serious: Yes (Hospitalization)
  Sender: FDA-Public Use
  Company Number: PHHY2014IT028902

PATIENT
  Age: 29 Year
  Sex: Male

DRUGS (5)
  1. AMOXICILLIN + CLAVULANATE POTASSIUM [Suspect]
     Indication: TONSILLITIS
  2. IBUPROFEN [Suspect]
  3. PARACETAMOL [Suspect]
  4. METAMIZOLE [Suspect]
  5. KETOPROFEN [Concomitant]

REACTIONS (10)
  - Acute generalised exanthematous pustulosis [Recovered/Resolved]
  - Rash pustular [Recovered/Resolved]
  - Stomatitis [Recovered/Resolved]
  - Inflammatory pain [Recovered/Resolved]
  - Blister [Recovered/Resolved]
  - Hypophagia [Recovered/Resolved]
  - Skin erosion [Recovered/Resolved]
  - Leukocytosis [Recovered/Resolved]
  - Pyrexia [Recovered/Resolved]
  - Type IV hypersensitivity reaction [Recovered/Resolved]
